FAERS Safety Report 9560870 (Version 1)
Quarter: 2013Q3

REPORT INFORMATION
  Report Type: Spontaneous
  Country: US (occurrence: None)
  Receive Date: 20130909
  Receipt Date: 20130909
  Transmission Date: 20140515
  Serious: Yes (Hospitalization)
  Sender: FDA-Public Use
  Company Number: 375452

PATIENT
  Sex: Female
  Weight: 110.2 kg

DRUGS (2)
  1. VICTOZA (LIRAGLUTIDE) SOLUTION FOR INJECTION, 6MG/ML [Suspect]
     Indication: TYPE 2 DIABETES MELLITUS
     Dates: start: 20130226, end: 20130307
  2. ZESTORETIC (HYDROCHLOROTHIAZIDE, LISINOPRIL) [Concomitant]

REACTIONS (1)
  - Renal failure [None]
